FAERS Safety Report 12351855 (Version 2)
Quarter: 2016Q2

REPORT INFORMATION
  Report Type: Spontaneous
  Country: US (occurrence: US)
  Receive Date: 20160510
  Receipt Date: 20160511
  Transmission Date: 20160815
  Serious: No
  Sender: FDA-Public Use
  Company Number: US-PFIZER INC-2016241011

PATIENT
  Age: 29 Year
  Sex: Female

DRUGS (2)
  1. ZOLOFT [Suspect]
     Active Substance: SERTRALINE HYDROCHLORIDE
     Dosage: UNK
  2. ACCUTANE [Interacting]
     Active Substance: ISOTRETINOIN
     Dosage: UNK

REACTIONS (1)
  - Drug interaction [Unknown]
